FAERS Safety Report 14821983 (Version 1)
Quarter: 2018Q2

REPORT INFORMATION
  Report Type: Spontaneous
  Country: US (occurrence: US)
  Receive Date: 20180427
  Receipt Date: 20180427
  Transmission Date: 20180711
  Serious: Yes (Life-Threatening, Hospitalization, Other)
  Sender: FDA-Public Use
  Company Number: US-SA-2017SA041951

PATIENT
  Age: 69 Year
  Sex: Male
  Weight: 97.05 kg

DRUGS (19)
  1. ROPINIROLE. [Interacting]
     Active Substance: ROPINIROLE
     Indication: SCHIZOPHRENIA
     Route: 065
  2. FLUPHENAZINE DECANOATE. [Interacting]
     Active Substance: FLUPHENAZINE DECANOATE
     Indication: BIPOLAR DISORDER
     Route: 065
  3. FLUPHENAZINE DECANOATE. [Interacting]
     Active Substance: FLUPHENAZINE DECANOATE
     Indication: SCHIZOPHRENIA
     Route: 065
  4. FLUOXETINE [Interacting]
     Active Substance: FLUOXETINE HYDROCHLORIDE
     Indication: BIPOLAR DISORDER
     Route: 065
  5. ROPINIROLE. [Concomitant]
     Active Substance: ROPINIROLE
     Indication: BIPOLAR DISORDER
     Route: 065
  6. DIGOXIN. [Concomitant]
     Active Substance: DIGOXIN
  7. DIPHENHYDRAMINE. [Interacting]
     Active Substance: DIPHENHYDRAMINE
     Indication: BIPOLAR DISORDER
     Route: 048
  8. CLOPIDOGREL [Concomitant]
     Active Substance: CLOPIDOGREL BISULFATE
  9. AMIODARONE [Interacting]
     Active Substance: AMIODARONE
     Indication: ISCHAEMIC CARDIOMYOPATHY
     Route: 065
  10. FLUOXETINE [Interacting]
     Active Substance: FLUOXETINE HYDROCHLORIDE
     Indication: SCHIZOPHRENIA
     Route: 065
  11. ROPINIROLE. [Interacting]
     Active Substance: ROPINIROLE
     Indication: BIPOLAR DISORDER
     Route: 065
  12. AMIODARONE [Interacting]
     Active Substance: AMIODARONE
     Indication: CORONARY ARTERY DISEASE
     Route: 065
  13. OLANZAPINE. [Interacting]
     Active Substance: OLANZAPINE
     Route: 048
  14. LORAZEPAM. [Concomitant]
     Active Substance: LORAZEPAM
     Indication: BIPOLAR DISORDER
  15. DIPHENHYDRAMINE. [Suspect]
     Active Substance: DIPHENHYDRAMINE
     Indication: INSOMNIA
     Route: 048
  16. CIPROFLOXACIN. [Interacting]
     Active Substance: CIPROFLOXACIN
     Indication: CORONARY ARTERY DISEASE
     Route: 065
  17. CARVEDILOL. [Concomitant]
     Active Substance: CARVEDILOL
  18. CIPROFLOXACIN. [Interacting]
     Active Substance: CIPROFLOXACIN
     Indication: URINARY TRACT INFECTION
     Route: 065
  19. POTASSIUM [Concomitant]
     Active Substance: POTASSIUM

REACTIONS (8)
  - Electrocardiogram QT prolonged [Unknown]
  - Mental status changes [Unknown]
  - Fatigue [Unknown]
  - Torsade de pointes [Not Recovered/Not Resolved]
  - Sepsis [Unknown]
  - Drug interaction [Unknown]
  - Ventricular tachycardia [Unknown]
  - Delirium [Unknown]
